FAERS Safety Report 20134964 (Version 1)
Quarter: 2021Q4

REPORT INFORMATION
  Report Type: Spontaneous
  Country: CN (occurrence: CN)
  Receive Date: 20211201
  Receipt Date: 20211201
  Transmission Date: 20220303
  Serious: Yes (Other)
  Sender: FDA-Public Use
  Company Number: CN-BAYER-2021A257695

PATIENT
  Age: 46 Year
  Sex: Female

DRUGS (1)
  1. IOPROMIDE [Suspect]
     Active Substance: IOPROMIDE
     Indication: Arteriogram
     Dosage: 20 ML, ONCE
     Route: 041
     Dates: start: 20211117, end: 20211117

REACTIONS (2)
  - Soft tissue mass [Recovered/Resolved]
  - Tissue discolouration [Recovered/Resolved]

NARRATIVE: CASE EVENT DATE: 20211117
